FAERS Safety Report 5572856-0 (Version None)
Quarter: 2007Q4

REPORT INFORMATION
  Report Type: 
  Country: None (occurrence: None)
  Receive Date: 20071223
  Receipt Date: 20071218
  Transmission Date: 20080405
  Serious: Yes (Other)
  Sender: FDA-Public Use
  Company Number: PHBS2007JP20003

PATIENT
  Age: 71 Year
  Sex: Male

DRUGS (4)
  1. RESCULA [Suspect]
     Indication: GLAUCOMA
     Dosage: UNK, UNK
     Dates: start: 19980929, end: 20070806
  2. ASPIRIN [Concomitant]
     Dosage: 100 MG, UNK
     Route: 048
  3. LIPITOR [Concomitant]
     Dosage: 10 MG, UNK
     Route: 048
  4. GLUCOBAY [Concomitant]
     Dosage: 300 MG, UNK
     Route: 048

REACTIONS (2)
  - CEREBRAL INFARCTION [None]
  - HYPOAESTHESIA ORAL [None]
